FAERS Safety Report 7903324-6 (Version None)
Quarter: 2011Q4

REPORT INFORMATION
  Report Type: 
  Country: None (occurrence: None)
  Receive Date: 20111109
  Receipt Date: 20111106
  Transmission Date: 20120403
  Serious: No
  Sender: FDA-Public Use
  Company Number: US-PFIZER INC-2011271635

PATIENT
  Sex: Male
  Weight: 65.76 kg

DRUGS (6)
  1. NICOTROL [Suspect]
     Indication: SMOKING CESSATION THERAPY
     Dosage: UNK, 2X-3X/DAY
     Dates: start: 20111001
  2. VITAMIN D [Concomitant]
     Indication: BLOOD CHOLESTEROL INCREASED
     Dosage: UNK, DAILY
     Route: 048
  3. LOVAZA [Concomitant]
     Dosage: 1 G, 4X/DAY
     Route: 048
  4. NICOTINIC ACID AMIDE [Concomitant]
     Indication: BLOOD CHOLESTEROL INCREASED
     Dosage: 5000 IU, DAILY
     Route: 048
  5. FISH OIL [Concomitant]
     Dosage: 2 CAPSULES, 2X/DAY
     Route: 048
  6. LIPITOR [Concomitant]
     Dosage: 80 MG, DAILY
     Route: 048

REACTIONS (1)
  - COUGH [None]
